FAERS Safety Report 21654645 (Version 1)
Quarter: 2022Q4

REPORT INFORMATION
  Report Type: Other
  Country: CA (occurrence: CA)
  Receive Date: 20221129
  Receipt Date: 20221129
  Transmission Date: 20230113
  Serious: Yes (Life-Threatening, Hospitalization)
  Sender: FDA-Public Use
  Company Number: CA-DEXPHARM-20222423

PATIENT
  Age: 15 Year
  Sex: Female
  Weight: 54 kg

DRUGS (7)
  1. AMLODIPINE [Interacting]
     Active Substance: AMLODIPINE BESYLATE
  2. HYDROCHLOROTHIAZIDE [Interacting]
     Active Substance: HYDROCHLOROTHIAZIDE
  3. LANSOPRAZOLE [Interacting]
     Active Substance: LANSOPRAZOLE
  4. CANDESARTAN [Interacting]
     Active Substance: CANDESARTAN
  5. MIRTAZAPINE [Interacting]
     Active Substance: MIRTAZAPINE
  6. FLUOXETINE [Interacting]
     Active Substance: FLUOXETINE HYDROCHLORIDE
  7. LORAZEPAM [Interacting]
     Active Substance: LORAZEPAM

REACTIONS (5)
  - Intentional overdose [Recovered/Resolved]
  - Hypotension [Recovered/Resolved]
  - Acute respiratory distress syndrome [Recovered/Resolved]
  - Vitamin B1 decreased [Recovered/Resolved]
  - Drug interaction [Recovered/Resolved]
